FAERS Safety Report 6847519-1 (Version None)
Quarter: 2010Q3

REPORT INFORMATION
  Report Type: 
  Country: None (occurrence: None)
  Receive Date: 20100716
  Receipt Date: 20100706
  Transmission Date: 20110219
  Serious: Yes (Other)
  Sender: FDA-Public Use
  Company Number: US-PFIZER INC-2010084912

PATIENT
  Sex: Female
  Weight: 73 kg

DRUGS (7)
  1. ANTIVERT [Suspect]
     Indication: VERTIGO
     Dosage: 25 MG, 3X/DAY
     Route: 048
     Dates: start: 19890101
  2. BENADRYL [Suspect]
     Indication: HYPERSENSITIVITY
     Dosage: UNK
  3. VALIUM [Concomitant]
     Dosage: UNK
     Dates: start: 19850101
  4. INDERAL [Concomitant]
     Dosage: UNK
     Dates: start: 19850101
  5. WELCHOL [Concomitant]
     Dosage: UNK
  6. ZESTRIL [Concomitant]
     Dosage: UNK
  7. OXYGEN [Concomitant]
     Dosage: UNK

REACTIONS (6)
  - BLOOD GLUCOSE DECREASED [None]
  - DIABETES MELLITUS [None]
  - DRUG INEFFECTIVE [None]
  - FATIGUE [None]
  - HYPERTENSION [None]
  - MALAISE [None]
